FAERS Safety Report 9910243 (Version 2)
Quarter: 2014Q1

REPORT INFORMATION
  Report Type: Spontaneous
  Country: BE (occurrence: BE)
  Receive Date: 20140219
  Receipt Date: 20140227
  Transmission Date: 20141002
  Serious: Yes (Other)
  Sender: FDA-Public Use
  Company Number: BE-B.I. PHARMACEUTICALS,INC./RIDGEFIELD-2014-BI-06890BL

PATIENT
  Sex: Male

DRUGS (2)
  1. TRAJENTA [Suspect]
     Indication: PRODUCT USED FOR UNKNOWN INDICATION
     Dosage: 5 MG
     Route: 065
     Dates: start: 20131213
  2. COVERSYL [Suspect]
     Indication: HYPERTENSION
     Route: 065

REACTIONS (2)
  - Angioedema [Unknown]
  - Dermatitis bullous [Recovered/Resolved]
